FAERS Safety Report 9431258 (Version 2)
Quarter: 2013Q4

REPORT INFORMATION
  Report Type: Spontaneous
  Country: US (occurrence: US)
  Receive Date: 20130730
  Receipt Date: 20131030
  Transmission Date: 20140711
  Serious: No
  Sender: FDA-Public Use
  Company Number: US-ROXANE LABORATORIES, INC.-2013-RO-01240RO

PATIENT
  Sex: Female

DRUGS (5)
  1. PREDNISONE [Suspect]
  2. REVATIO [Suspect]
     Indication: PULMONARY ARTERIAL HYPERTENSION
     Dosage: 60 MG
     Route: 048
  3. LASIX [Concomitant]
  4. SPIRIVA [Concomitant]
     Indication: CHRONIC OBSTRUCTIVE PULMONARY DISEASE
     Route: 055
  5. ADVAIR [Concomitant]
     Indication: CHRONIC OBSTRUCTIVE PULMONARY DISEASE
     Route: 055

REACTIONS (9)
  - Dyspnoea [Unknown]
  - Dizziness [Unknown]
  - Unevaluable event [Unknown]
  - Somnolence [Unknown]
  - Headache [Unknown]
  - Hot flush [Unknown]
  - Joint swelling [Unknown]
  - Influenza [Unknown]
  - Dyspepsia [Unknown]
